FAERS Safety Report 6501994-0 (Version None)
Quarter: 2009Q4

REPORT INFORMATION
  Report Type: 
  Country: None (occurrence: None)
  Receive Date: 20091209
  Receipt Date: 20091124
  Transmission Date: 20100525
  Serious: Yes (Other)
  Sender: FDA-Public Use
  Company Number: CA-144889

PATIENT
  Age: 11 Year
  Sex: Female
  Weight: 47 kg

DRUGS (3)
  1. WINRHO [Suspect]
     Indication: IDIOPATHIC THROMBOCYTOPENIC PURPURA
     Dosage: (75 PG/KG INTRAVENOUS (NOT OTHERWISE SPECIFIED)), (INTRAVENOUS (NOT OTHERWISE SPECIFIED))
     Route: 042
     Dates: start: 20091031, end: 20091031
  2. WINRHO [Suspect]
  3. IMMUNE GLOBULIN INTRAVENOUS (HUMAN) [Concomitant]

REACTIONS (4)
  - HAEMOGLOBIN DECREASED [None]
  - OVERDOSE [None]
  - POLYCHROMASIA [None]
  - RETICULOCYTE COUNT INCREASED [None]
